FAERS Safety Report 5941770-0 (Version None)
Quarter: 2008Q4

REPORT INFORMATION
  Report Type: 
  Country: None (occurrence: None)
  Receive Date: 20081105
  Receipt Date: 20081029
  Transmission Date: 20090506
  Serious: Yes (Other)
  Sender: FDA-Public Use
  Company Number: PHEH2008US09781

PATIENT
  Sex: Female

DRUGS (3)
  1. ZOMETA [Suspect]
     Indication: METASTASES TO BONE
     Dosage: 4 MG, MONTHLY
     Dates: start: 19940101
  2. AREDIA [Suspect]
     Indication: METASTASES TO BONE
     Dosage: UNK
     Dates: start: 19940101
  3. XELODA [Suspect]
     Indication: BREAST CANCER METASTATIC

REACTIONS (2)
  - FEMUR FRACTURE [None]
  - FOOT FRACTURE [None]
